FAERS Safety Report 10194466 (Version 2)
Quarter: 2014Q3

REPORT INFORMATION
  Report Type: Spontaneous
  Country: US (occurrence: US)
  Receive Date: 20140526
  Receipt Date: 20140708
  Transmission Date: 20150326
  Serious: No
  Sender: FDA-Public Use
  Company Number: US-BIOGENIDEC-2014BI042512

PATIENT
  Age: 47 Year
  Sex: Female

DRUGS (2)
  1. TECFIDERA [Suspect]
     Active Substance: DIMETHYL FUMARATE
     Indication: RELAPSING-REMITTING MULTIPLE SCLEROSIS
  2. TECFIDERA [Suspect]
     Active Substance: DIMETHYL FUMARATE
     Indication: RELAPSING-REMITTING MULTIPLE SCLEROSIS
     Route: 048
     Dates: start: 20140415, end: 20140427

REACTIONS (9)
  - Hypersensitivity [Not Recovered/Not Resolved]
  - Sensation of foreign body [Not Recovered/Not Resolved]
  - Heart rate increased [Recovered/Resolved]
  - Urticaria [Not Recovered/Not Resolved]
  - Prescribed underdose [Recovered/Resolved]
  - Headache [Recovered/Resolved with Sequelae]
  - Pain [Recovered/Resolved with Sequelae]
  - Blood pressure increased [Recovered/Resolved]
  - Chills [Recovered/Resolved with Sequelae]

NARRATIVE: CASE EVENT DATE: 20140415
